FAERS Safety Report 6407555-6 (Version None)
Quarter: 2009Q4

REPORT INFORMATION
  Report Type: 
  Country: None (occurrence: None)
  Receive Date: 20091020
  Receipt Date: 20091008
  Transmission Date: 20100525
  Serious: Yes (Life-Threatening)
  Sender: FDA-Public Use
  Company Number: FR-WYE-H11623609

PATIENT
  Sex: Male

DRUGS (8)
  1. CORDARONE [Suspect]
     Indication: ATRIAL FIBRILLATION
     Dosage: LOADING DOSE OF 1000 MG
     Dates: start: 20080903
  2. CORDARONE [Suspect]
     Indication: ISCHAEMIC STROKE
  3. KARDEGIC [Suspect]
     Indication: ATRIAL FIBRILLATION
     Dosage: UNSPECIFIED
     Dates: start: 20080901
  4. KARDEGIC [Suspect]
     Indication: ISCHAEMIC STROKE
  5. PREVISCAN [Suspect]
     Indication: ATRIAL FIBRILLATION
     Route: 048
     Dates: start: 20080903, end: 20080905
  6. PREVISCAN [Suspect]
     Indication: ISCHAEMIC STROKE
     Dosage: UNSPECIFIED
     Route: 048
  7. HEPARIN [Suspect]
     Indication: ATRIAL FIBRILLATION
     Route: 042
     Dates: start: 20080902, end: 20080906
  8. HEPARIN [Suspect]
     Indication: ISCHAEMIC STROKE

REACTIONS (1)
  - MUSCLE HAEMORRHAGE [None]
